FAERS Safety Report 16937588 (Version 1)
Quarter: 2019Q4

REPORT INFORMATION
  Report Type: Report from Study
  Country: US (occurrence: US)
  Receive Date: 20191018
  Receipt Date: 20191018
  Transmission Date: 20200122
  Serious: Yes (Death, Hospitalization, Other)
  Sender: FDA-Public Use
  Company Number: US-SA-2019SA236855

PATIENT
  Age: 58 Year
  Sex: Female

DRUGS (15)
  1. DECADRON [Concomitant]
     Active Substance: DEXAMETHASONE
     Dosage: 10 MG (FOR 3 DAYS THEN TO 4 M  PO TID), TID
     Route: 048
  2. CALCIUM + VIT D [Concomitant]
     Active Substance: CALCIUM\VITAMIN D
     Dosage: UNK UNK, UNK
     Route: 065
  3. BACITRACIN ZINC. [Concomitant]
     Active Substance: BACITRACIN ZINC
     Dosage: 500U UNIT/ GRAM UNK
     Route: 061
  4. VIMPAT [Concomitant]
     Active Substance: LACOSAMIDE
     Dosage: 100 MG, BID
     Route: 048
  5. DETROL LA [Concomitant]
     Active Substance: TOLTERODINE TARTRATE
     Dosage: 2 MG, UNK
     Route: 065
  6. LIDOCAINE/PRILOCAINE [Concomitant]
     Active Substance: LIDOCAINE\PRILOCAINE
     Dosage: UNK UNK, UNK
     Route: 061
  7. MIRALAX [Concomitant]
     Active Substance: POLYETHYLENE GLYCOL 3350
     Dosage: 17 G, UNK
     Route: 048
  8. CLEMASTINE [Concomitant]
     Active Substance: CLEMASTINE
     Dosage: 2.68X2 UNK, BID
     Route: 048
  9. DETROL LA [Concomitant]
     Active Substance: TOLTERODINE TARTRATE
     Indication: MICTURITION URGENCY
     Dosage: 4 MG, UNK
     Route: 065
  10. ALEMTUZUMAB [Suspect]
     Active Substance: ALEMTUZUMAB
     Dosage: 12 MG, QD
     Route: 041
     Dates: start: 20180910, end: 20180914
  11. KLONOPIN [Concomitant]
     Active Substance: CLONAZEPAM
     Dosage: 1 MG, TID
     Route: 065
  12. TRIAMCINOLONE ACETONIDE. [Concomitant]
     Active Substance: TRIAMCINOLONE ACETONIDE
     Dosage: UNK UNK, UNK
     Route: 061
  13. XARELTO [Concomitant]
     Active Substance: RIVAROXABAN
     Indication: THROMBOSIS PROPHYLAXIS
     Dosage: UNK UNK, UNK
     Route: 065
     Dates: start: 2019
  14. ACYCLOVIR [ACICLOVIR] [Concomitant]
     Active Substance: ACYCLOVIR
     Dosage: 200 MG, BID
     Route: 065
  15. OMEPRAZOLE. [Concomitant]
     Active Substance: OMEPRAZOLE
     Dosage: 40, UNK, QD
     Route: 065

REACTIONS (27)
  - Pseudomonas test positive [Recovering/Resolving]
  - Abdominal lymphadenopathy [Unknown]
  - Bladder cancer [Unknown]
  - Metastases to lung [Unknown]
  - Neoplasm malignant [Unknown]
  - Metastases to spine [Unknown]
  - Nephrolithiasis [Unknown]
  - Fall [Unknown]
  - Sepsis [Recovering/Resolving]
  - Anaemia [Recovering/Resolving]
  - Haemoglobin decreased [Recovered/Resolved]
  - Pancytopenia [Unknown]
  - Bone cancer [Unknown]
  - Cerebral disorder [Not Recovered/Not Resolved]
  - Nervous system disorder [Not Recovered/Not Resolved]
  - Cast removal [Unknown]
  - White blood cell count increased [Recovered/Resolved]
  - Multiple sclerosis [Unknown]
  - Pulmonary mass [Unknown]
  - Pyrexia [Recovered/Resolved]
  - Lymphoma [Unknown]
  - Lower limb fracture [Recovered/Resolved]
  - Urinary tract infection [Recovering/Resolving]
  - Bladder cancer stage IV [Unknown]
  - Metastases to liver [Unknown]
  - Death [Fatal]
  - Cholangiocarcinoma [Unknown]

NARRATIVE: CASE EVENT DATE: 2019
